FAERS Safety Report 19013112 (Version 1)
Quarter: 2021Q1

REPORT INFORMATION
  Report Type: Spontaneous
  Country: GB (occurrence: GB)
  Receive Date: 20210315
  Receipt Date: 20210315
  Transmission Date: 20210420
  Serious: Yes (Hospitalization, Disabling, Other)
  Sender: FDA-Public Use
  Company Number: GB-PFIZER INC-2021234509

PATIENT
  Age: 42 Year
  Sex: Female
  Weight: 47.62 kg

DRUGS (10)
  1. FEXOFENADINE HYDROCHLORIDE. [Concomitant]
     Active Substance: FEXOFENADINE HYDROCHLORIDE
     Dosage: UNK
  2. TRIMETHOPRIM. [Concomitant]
     Active Substance: TRIMETHOPRIM
     Dosage: UNK
  3. HYDROCORTISONE SODIUM SUCCINATE [Suspect]
     Active Substance: HYDROCORTISONE SODIUM SUCCINATE
     Indication: ADDISON^S DISEASE
     Dosage: 100MG IV
     Route: 051
     Dates: start: 20210214, end: 20210214
  4. LAXIDO [Concomitant]
     Active Substance: POLYETHYLENE GLYCOL 3350\POTASSIUM CHLORIDE\SODIUM BICARBONATE\SODIUM CHLORIDE
     Dosage: UNK
  5. OMEPRAZOLE. [Concomitant]
     Active Substance: OMEPRAZOLE
     Dosage: UNK
  6. HYDROCORTISONE. [Suspect]
     Active Substance: HYDROCORTISONE
     Dosage: 10MG AT 8AM.5 MG AT 12PM AND 5MG AT 5PM.
     Route: 048
     Dates: start: 20210201, end: 20210220
  7. SERETIDE [Concomitant]
     Active Substance: FLUTICASONE PROPIONATE\SALMETEROL XINAFOATE
     Dosage: UNK
  8. CLOBETASOL [Concomitant]
     Active Substance: CLOBETASOL
     Dosage: UNK
  9. HYDROMOL [EMULSIFYING WAX;PARAFFIN SOFT] [Concomitant]
     Dosage: UNK
  10. VENTOLIN [Concomitant]
     Active Substance: ALBUTEROL SULFATE
     Dosage: UNK

REACTIONS (38)
  - Chest discomfort [Unknown]
  - Feeling cold [Unknown]
  - Swelling face [Unknown]
  - Dyspnoea [Unknown]
  - Peripheral coldness [Not Recovered/Not Resolved]
  - Depression [Not Recovered/Not Resolved]
  - Asthenia [Not Recovered/Not Resolved]
  - Irritability [Not Recovered/Not Resolved]
  - Fatigue [Not Recovered/Not Resolved]
  - Conversion disorder [Unknown]
  - Restless legs syndrome [Not Recovered/Not Resolved]
  - Anxiety [Not Recovered/Not Resolved]
  - Chest pain [Unknown]
  - Thirst [Not Recovered/Not Resolved]
  - Syncope [Not Recovered/Not Resolved]
  - Confusional state [Unknown]
  - Agitation [Not Recovered/Not Resolved]
  - Burning sensation [Unknown]
  - Peripheral swelling [Unknown]
  - Somnolence [Unknown]
  - Hypertension [Unknown]
  - Hallucination [Not Recovered/Not Resolved]
  - Malaise [Not Recovered/Not Resolved]
  - Anxiety [Unknown]
  - Psychotic disorder [Not Recovered/Not Resolved]
  - Vision blurred [Not Recovered/Not Resolved]
  - Alopecia [Not Recovered/Not Resolved]
  - Urinary tract infection [Unknown]
  - Crying [Not Recovered/Not Resolved]
  - Acne [Not Recovered/Not Resolved]
  - Speech disorder [Not Recovered/Not Resolved]
  - Loss of consciousness [Recovered/Resolved]
  - Decorticate posture [Not Recovered/Not Resolved]
  - Yellow skin [Unknown]
  - Poor peripheral circulation [Not Recovered/Not Resolved]
  - Tremor [Unknown]
  - Feeling of body temperature change [Unknown]
  - Emotional distress [Unknown]

NARRATIVE: CASE EVENT DATE: 20210201
